FAERS Safety Report 13538140 (Version 4)
Quarter: 2017Q3

REPORT INFORMATION
  Report Type: Report from Study
  Country: AU (occurrence: AU)
  Receive Date: 20170512
  Receipt Date: 20170714
  Transmission Date: 20171127
  Serious: Yes (Hospitalization)
  Sender: FDA-Public Use
  Company Number: AU-ROCHE-1920533

PATIENT
  Age: 62 Year
  Sex: Male
  Weight: 92.6 kg

DRUGS (5)
  1. COLCHICINE. [Concomitant]
     Active Substance: COLCHICINE
     Indication: GOUT
     Route: 048
     Dates: start: 201501
  2. BEVACIZUMAB. [Suspect]
     Active Substance: BEVACIZUMAB
     Indication: RENAL CELL CARCINOMA
     Dosage: DAYS 1 AND 22 OF EACH 42-DAY CYCLE?DATE OF MOST RECENT DOSE OF BEVACIZUMAB WAS 1375 MG, ON 24/JAN/20
     Route: 042
     Dates: start: 20160809
  3. ENDONE [Concomitant]
     Active Substance: OXYCODONE HYDROCHLORIDE
     Indication: MYALGIA
     Route: 048
     Dates: start: 20161213
  4. ATEZOLIZUMAB. [Suspect]
     Active Substance: ATEZOLIZUMAB
     Indication: RENAL CELL CARCINOMA
     Dosage: DAYS 1 AND 22 OF EACH 42-DAY CYCLE?DATE OF MOST RECENT DOSE OF  ATEZOLIZUMAB WAS ON 24/JAN/2017
     Route: 042
     Dates: start: 20160809
  5. COLOXYL WITH SENNA [Concomitant]
     Active Substance: DOCUSATE\SENNOSIDES
     Indication: CONSTIPATION
     Route: 048
     Dates: start: 20170203

REACTIONS (1)
  - Lumbosacral plexopathy [Recovering/Resolving]

NARRATIVE: CASE EVENT DATE: 20170405
